FAERS Safety Report 13655210 (Version 1)
Quarter: 2017Q2

REPORT INFORMATION
  Report Type: Spontaneous
  Country: US (occurrence: US)
  Receive Date: 20170614
  Receipt Date: 20170614
  Transmission Date: 20170830
  Serious: Yes (Hospitalization)
  Sender: FDA-Public Use
  Company Number: None

PATIENT
  Age: 41 Year
  Sex: Female

DRUGS (1)
  1. MAKENA [Suspect]
     Active Substance: HYDROXYPROGESTERONE CAPROATE
     Indication: PRODUCT USED FOR UNKNOWN INDICATION
     Dosage: 250MG/1MG, INJECT 1 ML ONCE WEEKLY
     Route: 030
     Dates: start: 20170301

REACTIONS (1)
  - Premature rupture of membranes [None]

NARRATIVE: CASE EVENT DATE: 20170612
